FAERS Safety Report 8336682 (Version 2)
Quarter: 2013Q2

REPORT INFORMATION
  Report Type: Spontaneous
  Country: US (occurrence: US)
  Receive Date: 20120113
  Receipt Date: 20130403
  Transmission Date: 20140414
  Serious: Yes (Other)
  Sender: FDA-Public Use
  Company Number: US-PFIZER INC-2012008066

PATIENT
  Age: 57 Year
  Sex: Male
  Weight: 113 kg

DRUGS (5)
  1. DILANTIN-125 [Suspect]
     Indication: CONVULSION
     Dosage: ^100MG THREE A DAY^
     Dates: start: 1972
  2. DILANTIN-125 [Suspect]
     Dosage: 100 MG, 3X/DAY
  3. GLIMEPIRIDE [Concomitant]
     Indication: DIABETES MELLITUS
     Dosage: 2MG TWO A DAY
  4. AMLODIPINE [Concomitant]
     Indication: BLOOD PRESSURE ABNORMAL
     Dosage: 10 MG DAILY
     Dates: start: 1996
  5. PHENOBARBITAL [Concomitant]
     Indication: CONVULSION
     Dosage: 5 G, 2X/DAY

REACTIONS (3)
  - Cardiac disorder [Unknown]
  - Memory impairment [Unknown]
  - Hearing impaired [Unknown]
